FAERS Safety Report 4920844-7 (Version None)
Quarter: 2006Q1

REPORT INFORMATION
  Report Type: 
  Country: None (occurrence: None)
  Receive Date: 20060217
  Receipt Date: 20060206
  Transmission Date: 20060701
  Serious: Yes (Death)
  Sender: FDA-Public Use
  Company Number: 2005P1000571

PATIENT
  Age: 74 Year
  Sex: Male
  Weight: 93 kg

DRUGS (9)
  1. RETEPLASE (RETEPLASE) [Suspect]
     Indication: ACUTE MYOCARDIAL INFARCTION
     Dosage: IV
     Route: 042
     Dates: start: 20051017, end: 20051017
  2. ABCIXIMAB (ABCIXIMAB) [Suspect]
     Indication: ACUTE MYOCARDIAL INFARCTION
     Dosage: IV
     Route: 042
     Dates: start: 20051017
  3. CLOPIDOGREL BISULFATE [Concomitant]
  4. SIMVASTATIN [Concomitant]
  5. METOPROLOL SUCCINATE [Concomitant]
  6. VEPICOMBIN [Concomitant]
  7. ALL OTHER THERAPEUTIC PRODUCTS [Concomitant]
  8. ALBYL-ENTEROSOLUBILE [Concomitant]
  9. BENDOFLUMETHIAZIDE [Concomitant]

REACTIONS (12)
  - ARTERIOSCLEROSIS [None]
  - ATRIAL FIBRILLATION [None]
  - BRADYCARDIA [None]
  - CARDIAC ARREST [None]
  - CORONARY ARTERY OCCLUSION [None]
  - CORONARY ARTERY STENOSIS [None]
  - MYOCARDIAL INFARCTION [None]
  - PRODUCTIVE COUGH [None]
  - RALES [None]
  - RESPIRATORY TRACT INFECTION [None]
  - THROMBOSIS [None]
  - VENTRICULAR FIBRILLATION [None]
